FAERS Safety Report 10178684 (Version 2)
Quarter: 2014Q2

REPORT INFORMATION
  Report Type: Spontaneous
  Country: JP (occurrence: JP)
  Receive Date: 20140519
  Receipt Date: 20140529
  Transmission Date: 20141212
  Serious: Yes (Hospitalization, Other)
  Sender: FDA-Public Use
  Company Number: JP-TEVA-481719ISR

PATIENT
  Age: 79 Year
  Sex: Male
  Weight: 48.4 kg

DRUGS (2)
  1. CISPLATIN [Suspect]
     Indication: OESOPHAGEAL CARCINOMA
     Dosage: 64 MG/M2 DAILY;
     Route: 065
     Dates: start: 20100601
  2. 5-FLUOROURACIL [Concomitant]
     Dates: start: 20100601

REACTIONS (6)
  - Inappropriate antidiuretic hormone secretion [Unknown]
  - Hyponatraemia [Recovered/Resolved]
  - Renal failure [Recovered/Resolved]
  - Diarrhoea [Unknown]
  - Dyspepsia [Unknown]
  - Gastrointestinal disorder [Unknown]
